FAERS Safety Report 12673559 (Version 1)
Quarter: 2016Q3

REPORT INFORMATION
  Report Type: Spontaneous
  Country: US (occurrence: US)
  Receive Date: 20160822
  Receipt Date: 20160822
  Transmission Date: 20161109
  Serious: No
  Sender: FDA-Public Use
  Company Number: US-BAYER-2016-155941

PATIENT
  Age: 56 Year
  Sex: Female

DRUGS (1)
  1. CLIMARA PRO [Suspect]
     Active Substance: ESTRADIOL\LEVONORGESTREL
     Dosage: UNK UNK, OW
     Route: 062
     Dates: start: 20160725

REACTIONS (4)
  - Incorrect drug administration duration [None]
  - Feeling abnormal [None]
  - Product physical issue [None]
  - Product shape issue [None]
